FAERS Safety Report 24781764 (Version 1)
Quarter: 2024Q4

REPORT INFORMATION
  Report Type: Spontaneous
  Country: CH (occurrence: CH)
  Receive Date: 20241227
  Receipt Date: 20241227
  Transmission Date: 20250115
  Serious: Yes (Hospitalization, Other)
  Sender: BRISTOL-MYERS SQUIBB COMPANY
  Company Number: None

PATIENT
  Age: 85 Year
  Sex: Male
  Weight: 63.5 kg

DRUGS (3)
  1. NIVOLUMAB [Suspect]
     Active Substance: NIVOLUMAB
     Indication: Lung adenocarcinoma
     Route: 043
     Dates: start: 20240919, end: 20240919
  2. NIVOLUMAB [Suspect]
     Active Substance: NIVOLUMAB
     Route: 043
     Dates: start: 20241008, end: 20241008
  3. IPILIMUMAB [Suspect]
     Active Substance: IPILIMUMAB
     Indication: Lung adenocarcinoma
     Route: 043
     Dates: start: 20241008, end: 20241008

REACTIONS (5)
  - Hepatitis [Recovering/Resolving]
  - Thrombocytopenia [Recovering/Resolving]
  - Off label use [Unknown]
  - Fall [Unknown]
  - Hepatocellular carcinoma [Unknown]

NARRATIVE: CASE EVENT DATE: 20241029
